FAERS Safety Report 11125110 (Version 1)
Quarter: 2015Q2

REPORT INFORMATION
  Report Type: Other
  Country: DE (occurrence: DE)
  Receive Date: 20150520
  Receipt Date: 20150520
  Transmission Date: 20150821
  Serious: Yes (Other)
  Sender: FDA-Public Use
  Company Number: DE-MYLANLABS-2015M1016065

PATIENT

DRUGS (3)
  1. NASIC [Concomitant]
     Active Substance: DEXPANTHENOL\XYLOMETAZOLINE HYDROCHLORIDE
     Indication: NASOPHARYNGITIS
     Dosage: UNK
     Route: 045
     Dates: start: 20131207, end: 20131218
  2. IBUPROFEN. [Suspect]
     Active Substance: IBUPROFEN
     Indication: INTERVERTEBRAL DISC PROTRUSION
     Dosage: UNK (800 [ MG/D ]/ UNKNOWN, HOW LONG IBUPROFEN WAS TAKEN AND IN WHICH EXACT DOSE.)
     Route: 048
  3. FOLIO FORTE [Concomitant]
     Active Substance: FOLIC ACID\VITAMINS
     Indication: PROPHYLAXIS OF NEURAL TUBE DEFECT
     Dosage: UNK (0.8 [MG/D ])
     Route: 048
     Dates: start: 20131107, end: 20140815

REACTIONS (3)
  - Premature separation of placenta [Recovered/Resolved]
  - Foetal heart rate deceleration abnormality [Recovered/Resolved]
  - Exposure during pregnancy [Unknown]
